FAERS Safety Report 20527657 (Version 1)
Quarter: 2022Q1

REPORT INFORMATION
  Report Type: Spontaneous
  Country: US (occurrence: US)
  Receive Date: 20220228
  Receipt Date: 20220228
  Transmission Date: 20220423
  Serious: No
  Sender: FDA-Public Use
  Company Number: US-PERRIGO-21US008820

PATIENT
  Age: 60 Year
  Sex: Female
  Weight: 56.689 kg

DRUGS (1)
  1. ESTRADIOL [Suspect]
     Active Substance: ESTRADIOL
     Indication: Hormone level abnormal
     Dosage: SMALL AMOUNT, BID
     Route: 061
     Dates: start: 20210528, end: 20210622

REACTIONS (2)
  - Product dose omission issue [Unknown]
  - Off label use [Recovered/Resolved]

NARRATIVE: CASE EVENT DATE: 20210528
